FAERS Safety Report 6641298-9 (Version None)
Quarter: 2010Q1

REPORT INFORMATION
  Report Type: 
  Country: None (occurrence: None)
  Receive Date: 20100318
  Receipt Date: 20100315
  Transmission Date: 20100710
  Serious: Yes (Death, Hospitalization, Other)
  Sender: FDA-Public Use
  Company Number: GB-B.I. PHARMACEUTICALS,INC./RIDGEFIELD-2009-UK-01018UK

PATIENT
  Age: 47 Year
  Sex: Female
  Weight: 70 kg

DRUGS (8)
  1. VIRAMUNE [Suspect]
     Indication: HIV INFECTION
     Route: 048
     Dates: start: 20090917, end: 20091015
  2. CO-TRIMOXAZOLE [Concomitant]
  3. CYCLIZINE [Concomitant]
  4. FLUOXETINE [Concomitant]
  5. KIVEXA [Concomitant]
  6. MOVICOL [Concomitant]
  7. PARACETAMOL [Concomitant]
  8. SENNA [Concomitant]

REACTIONS (5)
  - DRUG HYPERSENSITIVITY [None]
  - ENCEPHALOPATHY [None]
  - HEPATIC NECROSIS [None]
  - HEPATITIS [None]
  - RASH [None]
